FAERS Safety Report 20686376 (Version 3)
Quarter: 2022Q2

REPORT INFORMATION
  Report Type: Spontaneous
  Country: US (occurrence: US)
  Receive Date: 20220407
  Receipt Date: 20220630
  Transmission Date: 20220721
  Serious: No
  Sender: FDA-Public Use
  Company Number: US-PFIZER INC-2021894591

PATIENT
  Age: 3 Year
  Sex: Male

DRUGS (3)
  1. EUCRISA [Suspect]
     Active Substance: CRISABOROLE
     Indication: Eczema
     Dosage: APPLY TO AREAS RASH/ECZEMA FOR MAINTENANCE
  2. EUCRISA [Suspect]
     Active Substance: CRISABOROLE
     Indication: Rash pruritic
     Dosage: APPLY TO ITCHY RASH ON TRUNK AND EXTREMITIES FOR MAINTENANCE
  3. EUCRISA [Suspect]
     Active Substance: CRISABOROLE
     Indication: Dermatitis atopic

REACTIONS (1)
  - Condition aggravated [Unknown]
